FAERS Safety Report 14578942 (Version 1)
Quarter: 2018Q1

REPORT INFORMATION
  Report Type: Spontaneous
  Country: FR (occurrence: FR)
  Receive Date: 20180227
  Receipt Date: 20180227
  Transmission Date: 20180509
  Serious: Yes (Death)
  Sender: FDA-Public Use
  Company Number: FR-MYLANLABS-2018M1012841

PATIENT
  Age: 91 Year
  Sex: Male

DRUGS (1)
  1. MIDAZOLAM [Suspect]
     Active Substance: MIDAZOLAM HYDROCHLORIDE
     Indication: ANXIETY

REACTIONS (2)
  - Incorrect drug dosage form administered [Fatal]
  - Off label use [Fatal]

NARRATIVE: CASE EVENT DATE: 20180212
